FAERS Safety Report 15901526 (Version 1)
Quarter: 2019Q1

REPORT INFORMATION
  Report Type: Spontaneous
  Country: US (occurrence: US)
  Receive Date: 20190201
  Receipt Date: 20190201
  Transmission Date: 20190417
  Serious: Yes (Hospitalization, Other)
  Sender: FDA-Public Use
  Company Number: None

PATIENT
  Age: 13 Month
  Sex: Female
  Weight: 11.25 kg

DRUGS (1)
  1. CVS PHARMACY IBUPROFEN [Suspect]
     Active Substance: IBUPROFEN
     Indication: PYREXIA
     Dosage: ?          QUANTITY:1.875 SYRINGE;?
     Route: 048
     Dates: start: 20181231

REACTIONS (10)
  - Abdominal pain upper [None]
  - Rash [None]
  - Vomiting [None]
  - Pyrexia [None]
  - Diarrhoea [None]
  - Anaemia [None]
  - Haematochezia [None]
  - Dehydration [None]
  - Clostridium difficile infection [None]
  - Recalled product administered [None]

NARRATIVE: CASE EVENT DATE: 20190118
